FAERS Safety Report 6785840-6 (Version None)
Quarter: 2010Q2

REPORT INFORMATION
  Report Type: 
  Country: None (occurrence: None)
  Receive Date: 20100623
  Receipt Date: 20100611
  Transmission Date: 20101027
  Serious: Yes (Other)
  Sender: FDA-Public Use
  Company Number: US-PFIZER INC-2010074050

PATIENT
  Sex: Female

DRUGS (2)
  1. XANAX [Suspect]
     Indication: INSOMNIA
     Dosage: 0.5 MG, AT BEDTIME
     Route: 048
  2. AMBIEN CR [Suspect]
     Indication: INSOMNIA
     Dosage: 12.5 MG,  AT BEDTIME
     Route: 048

REACTIONS (3)
  - POLYCYTHAEMIA [None]
  - SPLENOMEGALY [None]
  - THERAPEUTIC RESPONSE DECREASED [None]
